FAERS Safety Report 12432367 (Version 1)
Quarter: 2016Q2

REPORT INFORMATION
  Report Type: Spontaneous
  Country: US (occurrence: None)
  Receive Date: 20160602
  Receipt Date: 20160602
  Transmission Date: 20160815
  Serious: Yes (Hospitalization)
  Sender: FDA-Public Use
  Company Number: None

PATIENT
  Age: 42 Year
  Sex: Female
  Weight: 59 kg

DRUGS (7)
  1. QUETIAPINE. [Concomitant]
     Active Substance: QUETIAPINE
  2. MIRENA [Concomitant]
     Active Substance: LEVONORGESTREL
  3. GABAPENTIN. [Concomitant]
     Active Substance: GABAPENTIN
  4. ATENOLOL. [Concomitant]
     Active Substance: ATENOLOL
  5. BELSOMRA [Suspect]
     Active Substance: SUVOREXANT
     Indication: INSOMNIA
     Route: 048
     Dates: start: 20151031, end: 20151101
  6. CLONAZEPAM. [Concomitant]
     Active Substance: CLONAZEPAM
  7. SUVOREXANT. [Concomitant]
     Active Substance: SUVOREXANT

REACTIONS (10)
  - Mania [None]
  - Accidental overdose [None]
  - Psychotic disorder [None]
  - Feeling abnormal [None]
  - Bipolar disorder [None]
  - Amnesia [None]
  - Balance disorder [None]
  - Suicidal ideation [None]
  - Fall [None]
  - Contusion [None]

NARRATIVE: CASE EVENT DATE: 20151101
